FAERS Safety Report 8103442-6 (Version None)
Quarter: 2012Q1

REPORT INFORMATION
  Report Type: 
  Country: None (occurrence: None)
  Receive Date: 20120201
  Receipt Date: 20120124
  Transmission Date: 20120608
  Serious: No
  Sender: FDA-Public Use
  Company Number: PHHY2009JP28247

PATIENT
  Sex: Male

DRUGS (16)
  1. ASPARA-CA [Concomitant]
     Indication: PROPHYLAXIS
     Dosage: 600 MG, DAILY
     Route: 048
     Dates: start: 20090501
  2. ISOSORBIDE MONONITRATE [Concomitant]
     Dosage: 40 MG, DAILY
     Route: 048
     Dates: start: 20090501
  3. TASIGNA [Suspect]
     Dosage: 200 MG, DAILY
     Route: 048
     Dates: start: 20090617, end: 20090623
  4. GLIMICRON [Concomitant]
     Dosage: 40 MG, DAILY
     Route: 048
     Dates: start: 20090501
  5. ALLOPURINOL [Concomitant]
     Dosage: 100 MG, DAILY
     Route: 048
     Dates: start: 20090501
  6. LANIRAPID [Concomitant]
     Dosage: 0.1 MG, DAILY
     Route: 048
  7. PLAVIX [Concomitant]
     Dosage: 75 MG, DAILY
     Route: 048
     Dates: start: 20090501
  8. PRAVASTATIN SODIUM [Concomitant]
     Indication: HYPERCHOLESTEROLAEMIA
     Dosage: 10 MG, DAILY
     Route: 048
     Dates: start: 20090501
  9. ASPIRIN [Concomitant]
     Dosage: 100 MG, DAILY
     Dates: start: 20090501
  10. MUCOSOLVAN [Concomitant]
     Dosage: 45 MG, DAILY
     Route: 048
     Dates: start: 20090501
  11. TASIGNA [Suspect]
     Indication: CHRONIC MYELOID LEUKAEMIA
     Dosage: 400 MG, DAILY
     Route: 048
     Dates: start: 20090603, end: 20090616
  12. MEXITIL [Concomitant]
     Dosage: 300 MG, DAILY
     Dates: start: 20090501
  13. DEPAS [Concomitant]
     Indication: INSOMNIA
     Dosage: 1 MG, DAILY
     Route: 048
     Dates: start: 20090501
  14. LASIX [Concomitant]
     Dosage: 40 MG, DAILY
     Route: 048
     Dates: start: 20090501
  15. BAYCARON [Concomitant]
     Dosage: 12.5 MG, DAILY
     Route: 048
     Dates: start: 20090501
  16. MUCOSTA [Concomitant]
     Indication: GASTRITIS
     Dosage: 300 MG, DAILY
     Route: 048
     Dates: start: 20090501

REACTIONS (4)
  - ANAEMIA [None]
  - PYREXIA [None]
  - COUGH [None]
  - BLOOD UREA INCREASED [None]
